FAERS Safety Report 19503733 (Version 9)
Quarter: 2025Q1

REPORT INFORMATION
  Report Type: Report from Study
  Country: US (occurrence: US)
  Receive Date: 20210707
  Receipt Date: 20250114
  Transmission Date: 20250409
  Serious: Yes (Hospitalization, Other)
  Sender: TAKEDA
  Company Number: US-TAKEDA-2021TUS042249

PATIENT
  Age: 27 Year
  Sex: Male

DRUGS (5)
  1. ADVATE [Suspect]
     Active Substance: ANTIHEMOPHILIC FACTOR, HUMAN RECOMBINANT
     Indication: Haemorrhage
  2. ADVATE [Suspect]
     Active Substance: ANTIHEMOPHILIC FACTOR, HUMAN RECOMBINANT
  3. ADVATE [Suspect]
     Active Substance: ANTIHEMOPHILIC FACTOR, HUMAN RECOMBINANT
  4. ADVATE [Suspect]
     Active Substance: ANTIHEMOPHILIC FACTOR, HUMAN RECOMBINANT
  5. ADVATE [Suspect]
     Active Substance: ANTIHEMOPHILIC FACTOR, HUMAN RECOMBINANT

REACTIONS (12)
  - Joint dislocation [Recovered/Resolved]
  - Seizure [Unknown]
  - Haemorrhage [Unknown]
  - Mouth haemorrhage [Unknown]
  - Poor venous access [Unknown]
  - Tongue biting [Unknown]
  - Infusion site pruritus [Unknown]
  - Infusion site erythema [Unknown]
  - Muscle strain [Unknown]
  - Product dose omission issue [Unknown]
  - Swollen tongue [Not Recovered/Not Resolved]
  - Infusion site pain [Unknown]

NARRATIVE: CASE EVENT DATE: 20210628
